FAERS Safety Report 9227462 (Version 1)
Quarter: 2013Q1

REPORT INFORMATION
  Report Type: Spontaneous
  Country: US (occurrence: None)
  Receive Date: 20121004
  Receipt Date: 20121004
  Transmission Date: 20140127
  Serious: Yes (Other)
  Sender: FDA-Public Use
  Company Number: PHEH2011US04773

PATIENT
  Age: 54 Year
  Sex: Female

DRUGS (3)
  1. COMBIPATCH [Suspect]
     Route: 062
     Dates: start: 20110907
  2. GLUMETZA (METFORMIN HYDROCHLORIDE) [Concomitant]
  3. LISINOPRIL (LISINOPRIL) [Concomitant]

REACTIONS (4)
  - Thrombosis [None]
  - Blood glucose increased [None]
  - Vaginal haemorrhage [None]
  - Pain in extremity [None]
